FAERS Safety Report 7134339-6 (Version None)
Quarter: 2010Q4

REPORT INFORMATION
  Report Type: 
  Country: None (occurrence: None)
  Receive Date: 20101117
  Receipt Date: 20101103
  Transmission Date: 20110411
  Serious: Yes (Other)
  Sender: FDA-Public Use
  Company Number: MPS1-1000389

PATIENT
  Age: 5 Year
  Sex: Male

DRUGS (1)
  1. ALDURAZYME [Suspect]
     Indication: MUCOPOLYSACCHARIDOSIS

REACTIONS (4)
  - CYANOSIS [None]
  - CYANOSIS CENTRAL [None]
  - DYSPNOEA [None]
  - TACHYPNOEA [None]
